FAERS Safety Report 8777142 (Version 1)
Quarter: 2012Q4

REPORT INFORMATION
  Report Type: 
  Country: BR (occurrence: BR)
  Receive Date: 20120911
  Receipt Date: 20120911
  Transmission Date: 20130627
  Serious: Yes (Hospitalization)
  Sender: FDA-Public Use
  Company Number: BR-ABBOTT-12P-020-0977338-00

PATIENT
  Age: 72 Year
  Sex: Female

DRUGS (2)
  1. ADALIMUMAB [Suspect]
     Indication: RHEUMATOID ARTHRITIS
  2. ETANERCEPT [Suspect]
     Indication: RHEUMATOID ARTHRITIS

REACTIONS (2)
  - Rheumatoid factor increased [Unknown]
  - Vasculitis [Unknown]
